FAERS Safety Report 15193103 (Version 1)
Quarter: 2018Q3

REPORT INFORMATION
  Report Type: Spontaneous
  Country: US (occurrence: US)
  Receive Date: 20180725
  Receipt Date: 20180725
  Transmission Date: 20181010
  Serious: No
  Sender: FDA-Public Use
  Company Number: US-HORIZON-VIM-1077-2018

PATIENT
  Age: 43 Year
  Sex: Female

DRUGS (8)
  1. FLEXERIL [Concomitant]
     Active Substance: CYCLOBENZAPRINE HYDROCHLORIDE
  2. BUSPAR [Concomitant]
     Active Substance: BUSPIRONE HYDROCHLORIDE
  3. TRAZODONE [Concomitant]
     Active Substance: TRAZODONE HYDROCHLORIDE
  4. VIMOVO [Suspect]
     Active Substance: ESOMEPRAZOLE MAGNESIUM\NAPROXEN
     Indication: PRODUCT USED FOR UNKNOWN INDICATION
     Dosage: 1 TABLET TWICE A DAY
     Route: 048
     Dates: start: 201803
  5. DULOXETINE. [Concomitant]
     Active Substance: DULOXETINE
  6. ESTRADIOL. [Concomitant]
     Active Substance: ESTRADIOL
  7. GABAPENTIN. [Concomitant]
     Active Substance: GABAPENTIN
  8. COLCRYS [Concomitant]
     Active Substance: COLCHICINE

REACTIONS (1)
  - Drug ineffective [Unknown]
